FAERS Safety Report 20728114 (Version 1)
Quarter: 2022Q2

REPORT INFORMATION
  Report Type: Spontaneous
  Country: CG (occurrence: CG)
  Receive Date: 20220420
  Receipt Date: 20220420
  Transmission Date: 20220721
  Serious: Yes (Death, Other)
  Sender: FDA-Public Use
  Company Number: CG-SUN PHARMACEUTICAL INDUSTRIES LTD-2022RR-333503

PATIENT
  Age: 72 Year
  Sex: Male

DRUGS (13)
  1. CEFTRIAXONE [Suspect]
     Active Substance: CEFTRIAXONE
     Indication: COVID-19
     Dosage: UNK
     Route: 065
  2. OFLOXACIN [Suspect]
     Active Substance: OFLOXACIN
     Indication: COVID-19
     Dosage: UNK
     Route: 065
  3. AZITHROMYCIN [Suspect]
     Active Substance: AZITHROMYCIN
     Indication: COVID-19
     Dosage: UNK
     Route: 065
  4. RIVAROXABAN [Suspect]
     Active Substance: RIVAROXABAN
     Indication: COVID-19
     Dosage: UNK
     Route: 065
  5. VANCOMYCIN HYDROCHLORIDE [Suspect]
     Active Substance: VANCOMYCIN HYDROCHLORIDE
     Indication: COVID-19
     Dosage: UNK
     Route: 065
  6. ENOXAPARIN SODIUM [Suspect]
     Active Substance: ENOXAPARIN SODIUM
     Indication: COVID-19
     Dosage: UNK
     Route: 058
  7. PREDNISONE [Suspect]
     Active Substance: PREDNISONE
     Indication: COVID-19
     Dosage: UNK
     Route: 065
  8. DEXAMETHASONE [Suspect]
     Active Substance: DEXAMETHASONE
     Indication: COVID-19
     Dosage: UNK
     Route: 065
  9. AMIKACIN [Suspect]
     Active Substance: AMIKACIN
     Indication: COVID-19
     Dosage: UNK
     Route: 065
  10. HEPARIN [Suspect]
     Active Substance: HEPARIN SODIUM
     Indication: COVID-19
     Dosage: UNK
     Route: 065
  11. IMIPENEM [Concomitant]
     Active Substance: IMIPENEM
     Indication: COVID-19
     Dosage: UNK
     Route: 065
  12. VITAMIN C [Concomitant]
     Active Substance: ASCORBIC ACID
     Indication: COVID-19
     Dosage: UNK
     Route: 065
  13. VITAMIN D [Concomitant]
     Active Substance: VITAMIN D NOS
     Indication: COVID-19
     Dosage: UNK
     Route: 065

REACTIONS (2)
  - Hyperkalaemia [Fatal]
  - Off label use [Unknown]
